FAERS Safety Report 5886678-4 (Version None)
Quarter: 2008Q3

REPORT INFORMATION
  Report Type: 
  Country: None (occurrence: None)
  Receive Date: 20080917
  Receipt Date: 20080910
  Transmission Date: 20090109
  Serious: Yes (Other)
  Sender: FDA-Public Use
  Company Number: PHHY2008BR21148

PATIENT
  Age: 55 Year
  Sex: Female
  Weight: 60 kg

DRUGS (1)
  1. ESTRADERM [Suspect]
     Indication: HORMONE THERAPY
     Dosage: 50 MCG EVERY MON AND THURS
     Route: 062
     Dates: start: 20010101

REACTIONS (2)
  - DYSPHONIA [None]
  - INFLUENZA [None]
